FAERS Safety Report 4787740-X (Version None)
Quarter: 2005Q3

REPORT INFORMATION
  Report Type: 
  Country: None (occurrence: None)
  Receive Date: 20050926
  Receipt Date: 30050729
  Transmission Date: 20060218
  Serious: Yes (Hospitalization)
  Sender: FDA-Public Use
  Company Number: 216544

PATIENT
  Age: 84 Year
  Sex: Female
  Weight: 52.6 kg

DRUGS (5)
  1. AVASTIN [Suspect]
     Indication: COLORECTAL CANCER
     Dosage: 300 MG, Q2W, INTRAVNEOUS
     Route: 042
     Dates: start: 20040324, end: 20050629
  2. MEGACE [Concomitant]
  3. K-DUR 10 [Concomitant]
  4. FLUOROURACIL [Concomitant]
  5. OXALIPLATIN (OXALIPLATIN) [Concomitant]

REACTIONS (1)
  - RECTAL HAEMORRHAGE [None]
